FAERS Safety Report 14973792 (Version 1)
Quarter: 2018Q2

REPORT INFORMATION
  Report Type: Spontaneous
  Country: IT (occurrence: IT)
  Receive Date: 20180605
  Receipt Date: 20180605
  Transmission Date: 20180711
  Serious: Yes (Other)
  Sender: FDA-Public Use
  Company Number: IT-JNJFOC-20180540401

PATIENT
  Age: 21 Year
  Sex: Female

DRUGS (2)
  1. HALDOL DECANOAS [Suspect]
     Active Substance: HALOPERIDOL DECANOATE
     Indication: PSYCHOTIC DISORDER
     Route: 030
     Dates: start: 20180413
  2. LORAZEPAM. [Concomitant]
     Active Substance: LORAZEPAM
     Indication: PSYCHOTIC DISORDER
     Route: 065

REACTIONS (4)
  - Musculoskeletal stiffness [Unknown]
  - Myalgia [Unknown]
  - Neck pain [Unknown]
  - Tremor [Unknown]

NARRATIVE: CASE EVENT DATE: 20180423
